FAERS Safety Report 9468213 (Version 2)
Quarter: 2013Q4

REPORT INFORMATION
  Report Type: Spontaneous
  Country: FR (occurrence: FR)
  Receive Date: 20130821
  Receipt Date: 20131127
  Transmission Date: 20140711
  Serious: Yes (Disabling)
  Sender: FDA-Public Use
  Company Number: FR-SANOFI-AVENTIS-2013SA081900

PATIENT
  Age: 68 Year
  Sex: Female

DRUGS (13)
  1. LOVENOX [Suspect]
     Indication: PRODUCT USED FOR UNKNOWN INDICATION
     Route: 058
     Dates: start: 20130708, end: 20130719
  2. PREVISCAN [Suspect]
     Indication: PRODUCT USED FOR UNKNOWN INDICATION
     Dosage: STRENGTH: 20 MG
     Route: 048
     Dates: end: 201307
  3. PREVISCAN [Suspect]
     Indication: PRODUCT USED FOR UNKNOWN INDICATION
     Dosage: STRENGTH: 20 MG
     Route: 048
     Dates: start: 20130716, end: 20130721
  4. EVISTA [Concomitant]
     Dosage: STRENGTH: 60MG
     Route: 048
     Dates: end: 20130723
  5. AUGMENTIN [Concomitant]
     Dosage: STRENGTH: 500MG/125MG
     Route: 048
     Dates: start: 20130712, end: 20130722
  6. COLCHICINE [Concomitant]
     Dosage: STRENGTH: 1MG
     Route: 048
  7. DIGOXIN ^NATIVELLE^ [Concomitant]
     Dosage: STRENGTH: 0.25
     Route: 048
  8. ENBREL [Concomitant]
     Dosage: STRENGTH: 25MG
     Route: 058
  9. SELOKEN [Concomitant]
     Dosage: STRENGTH: 200MG
  10. LASILIX [Concomitant]
     Dosage: STRENGTH: 40MG
     Route: 048
  11. INIPOMP [Concomitant]
     Dosage: STRENGTH: 40MG
     Route: 048
  12. DEBRIDAT [Concomitant]
     Route: 048
  13. VIT K ANTAGONISTS [Concomitant]

REACTIONS (4)
  - Ischaemic stroke [Not Recovered/Not Resolved]
  - Hemiplegia [Not Recovered/Not Resolved]
  - Aphasia [Recovering/Resolving]
  - Drug ineffective [Unknown]
